FAERS Safety Report 5038845-X (Version None)
Quarter: 2006Q2

REPORT INFORMATION
  Report Type: 
  Country: None (occurrence: None)
  Receive Date: 20060629
  Receipt Date: 20060621
  Transmission Date: 20061013
  Serious: Yes (Other)
  Sender: FDA-Public Use
  Company Number: 2006AP02886

PATIENT
  Age: 69 Year
  Sex: Male

DRUGS (4)
  1. OMEPRAL [Suspect]
     Indication: GASTRITIS
     Route: 048
     Dates: start: 20060427, end: 20060501
  2. AMOXICILLIN [Concomitant]
     Route: 048
     Dates: start: 20060427, end: 20060501
  3. CLARITHROMYCIN [Concomitant]
     Route: 048
     Dates: start: 20060427, end: 20060501
  4. DIOVAN [Concomitant]
     Route: 048
     Dates: start: 20060403, end: 20060506

REACTIONS (1)
  - INTERSTITIAL LUNG DISEASE [None]
